FAERS Safety Report 5341774-5 (Version None)
Quarter: 2007Q2

REPORT INFORMATION
  Report Type: 
  Country: None (occurrence: None)
  Receive Date: 20070601
  Receipt Date: 20070529
  Transmission Date: 20071010
  Serious: Yes (Death, Other)
  Sender: FDA-Public Use
  Company Number: GR-ELI_LILLY_AND_COMPANY-GR200703005944

PATIENT
  Age: 59 Year
  Sex: Male
  Weight: 96 kg

DRUGS (1)
  1. GEMZAR [Suspect]
     Indication: NON-SMALL CELL LUNG CANCER
     Dosage: 1600 MG, UNK
     Route: 042
     Dates: start: 20070203

REACTIONS (4)
  - ACUTE PULMONARY OEDEMA [None]
  - DYSPNOEA [None]
  - HYPERTENSIVE CRISIS [None]
  - RESPIRATORY ACIDOSIS [None]
